FAERS Safety Report 20661511 (Version 1)
Quarter: 2022Q2

REPORT INFORMATION
  Report Type: Spontaneous
  Country: FR (occurrence: FR)
  Receive Date: 20220401
  Receipt Date: 20220401
  Transmission Date: 20220721
  Serious: Yes (Hospitalization, Other)
  Sender: FDA-Public Use
  Company Number: FR-ASTELLAS-2022US009654

PATIENT
  Age: 70 Year
  Sex: Male

DRUGS (5)
  1. PREDNISONE [Suspect]
     Active Substance: PREDNISONE
     Indication: Immunosuppressant drug therapy
     Dosage: UNK (UNKNOWN FREQ.)
     Route: 065
  2. AZATHIOPRINE [Suspect]
     Active Substance: AZATHIOPRINE
     Indication: Product used for unknown indication
     Dosage: UNK (UNKNOWN FREQ.)
     Route: 065
  3. CYCLOSPORINE [Suspect]
     Active Substance: CYCLOSPORINE
     Indication: Immunosuppressant drug therapy
     Dosage: UNK (UNKNOWN FREQ.)
     Route: 065
  4. PROGRAF [Suspect]
     Active Substance: TACROLIMUS
     Indication: Renal transplant
     Dosage: UNK (UNKNOWN FREQ.)
     Route: 048
     Dates: start: 2018
  5. PROGRAF [Suspect]
     Active Substance: TACROLIMUS
     Dosage: 3.5 MILLIGRAM ( UNKNOWN FREQ.)
     Route: 048
     Dates: start: 2019

REACTIONS (5)
  - Pseudomonas infection [Not Recovered/Not Resolved]
  - Disease recurrence [Recovered/Resolved]
  - Cutaneous malacoplakia [Recovered/Resolved]
  - Viral infection [Unknown]
  - Escherichia infection [Recovered/Resolved]

NARRATIVE: CASE EVENT DATE: 20190101
